FAERS Safety Report 11403294 (Version 1)
Quarter: 2015Q3

REPORT INFORMATION
  Report Type: Spontaneous
  Country: US (occurrence: US)
  Receive Date: 20150821
  Receipt Date: 20150821
  Transmission Date: 20151125
  Serious: Yes (Other)
  Sender: FDA-Public Use
  Company Number: US-TEVA-518740USA

PATIENT
  Sex: Male

DRUGS (1)
  1. CLONIDINE. [Suspect]
     Active Substance: CLONIDINE
     Indication: HYPERTENSION
     Dates: start: 20141010

REACTIONS (12)
  - Blood pressure increased [Unknown]
  - Confusional state [Unknown]
  - Gastrointestinal pain [Unknown]
  - Nervousness [Unknown]
  - Feeling abnormal [Unknown]
  - Insomnia [Unknown]
  - Drug effect decreased [Unknown]
  - Gastrointestinal disorder [Unknown]
  - Chest pain [Unknown]
  - Anxiety [Unknown]
  - Headache [Unknown]
  - Dyspnoea [Unknown]
